FAERS Safety Report 17236052 (Version 10)
Quarter: 2021Q4

REPORT INFORMATION
  Report Type: Report from Study
  Country: AU (occurrence: AU)
  Receive Date: 20200106
  Receipt Date: 20211101
  Transmission Date: 20220303
  Serious: Yes (Hospitalization)
  Sender: FDA-Public Use
  Company Number: AU-CELGENE-AUS-20191205824

PATIENT
  Age: 69 Year
  Sex: Male
  Weight: 100 kg

DRUGS (24)
  1. AZACITIDINE [Suspect]
     Active Substance: AZACITIDINE
     Indication: Acute myeloid leukaemia
     Dosage: 162 MILLIGRAM
     Route: 058
     Dates: start: 20191209, end: 20191209
  2. AZACITIDINE [Suspect]
     Active Substance: AZACITIDINE
     Dosage: 160 MILLIGRAM
     Route: 058
     Dates: start: 20191210, end: 20191210
  3. AZACITIDINE [Suspect]
     Active Substance: AZACITIDINE
     Dosage: 160 MILLIGRAM
     Route: 058
     Dates: start: 20191210, end: 20191216
  4. AZACITIDINE [Suspect]
     Active Substance: AZACITIDINE
     Dosage: 160 MILLIGRAM
     Route: 058
     Dates: start: 20200106, end: 20200114
  5. AZACITIDINE [Suspect]
     Active Substance: AZACITIDINE
     Dosage: 155 MILLIGRAM
     Route: 058
     Dates: start: 20200203, end: 20200211
  6. AZACITIDINE [Suspect]
     Active Substance: AZACITIDINE
     Dosage: 150 MILLIGRAM
     Route: 058
     Dates: start: 20200302, end: 20201003
  7. AZACITIDINE [Suspect]
     Active Substance: AZACITIDINE
     Dosage: 140 MILLIGRAM
     Route: 058
     Dates: start: 20201014
  8. AZACITIDINE [Suspect]
     Active Substance: AZACITIDINE
     Dosage: 140 MILLIGRAM
     Route: 058
     Dates: start: 20210209, end: 20210225
  9. ALLOPURINOL [Concomitant]
     Active Substance: ALLOPURINOL
     Indication: Product used for unknown indication
     Dosage: 300 MILLIGRAM
     Route: 048
     Dates: start: 1989
  10. ROSUVASTATIN [Concomitant]
     Active Substance: ROSUVASTATIN
     Indication: Product used for unknown indication
     Dosage: 20 MILLIGRAM
     Route: 065
     Dates: start: 2009
  11. PARACETAMOL OSTEO [Concomitant]
     Indication: Febrile neutropenia
     Route: 048
     Dates: start: 2011
  12. RUXOLITINIB [Concomitant]
     Active Substance: RUXOLITINIB
     Indication: Product used for unknown indication
     Dosage: 10 MILLIGRAM
     Route: 048
     Dates: start: 2015, end: 20191208
  13. FENTANYL [Concomitant]
     Active Substance: FENTANYL
     Indication: Product used for unknown indication
     Dosage: 30 MICROGRAM
     Route: 041
     Dates: start: 20191203, end: 20191203
  14. BACTRIM DS [Concomitant]
     Active Substance: SULFAMETHOXAZOLE\TRIMETHOPRIM
     Indication: Product used for unknown indication
     Dosage: HALF TABLET
     Route: 048
     Dates: start: 20191209
  15. MIDAZOLAM [Concomitant]
     Active Substance: MIDAZOLAM
     Indication: Product used for unknown indication
     Dosage: 4 MILLIGRAM
     Route: 041
     Dates: start: 20191203, end: 20191203
  16. METOCLOPRAMIDE HYDROCHLORIDE [Concomitant]
     Active Substance: METOCLOPRAMIDE HYDROCHLORIDE
     Indication: Product used for unknown indication
     Route: 048
     Dates: start: 20191209, end: 20191213
  17. VALACYCLOVIR HYDROCHLORIDE [Concomitant]
     Active Substance: VALACYCLOVIR HYDROCHLORIDE
     Indication: Product used for unknown indication
     Dosage: 1000 MILLIGRAM
     Route: 048
     Dates: start: 20191209
  18. VALACYCLOVIR HYDROCHLORIDE [Concomitant]
     Active Substance: VALACYCLOVIR HYDROCHLORIDE
     Dosage: 3000 MILLIGRAM
     Route: 048
     Dates: start: 20191209
  19. ONDANSETRON [Concomitant]
     Active Substance: ONDANSETRON
     Indication: Product used for unknown indication
     Route: 048
     Dates: start: 20191210
  20. ENOXAPARIN [Concomitant]
     Active Substance: ENOXAPARIN
     Indication: Product used for unknown indication
     Dosage: 40 MILLIGRAM
     Route: 058
     Dates: start: 20191212, end: 20191213
  21. AMOXICILLIN [Concomitant]
     Active Substance: AMOXICILLIN
     Indication: Product used for unknown indication
     Route: 065
     Dates: start: 20210226
  22. PLACEBO [Suspect]
     Active Substance: UNSPECIFIED INGREDIENT
     Indication: Acute myeloid leukaemia
     Dosage: 500 MILLIGRAM
     Route: 048
     Dates: start: 20191209, end: 20191209
  23. PLACEBO [Suspect]
     Active Substance: UNSPECIFIED INGREDIENT
     Dosage: 500 MILLIGRAM
     Route: 048
     Dates: start: 20191216, end: 20191216
  24. PLACEBO [Suspect]
     Active Substance: UNSPECIFIED INGREDIENT
     Dosage: 500 MILLIGRAM
     Route: 048
     Dates: start: 20191224

REACTIONS (4)
  - Splenomegaly [Recovered/Resolved]
  - Presyncope [Recovered/Resolved]
  - Febrile neutropenia [Recovered/Resolved]
  - Pneumonia [Recovered/Resolved]

NARRATIVE: CASE EVENT DATE: 20191210
